FAERS Safety Report 14690587 (Version 1)
Quarter: 2018Q1

REPORT INFORMATION
  Report Type: Spontaneous
  Country: US (occurrence: US)
  Receive Date: 20180328
  Receipt Date: 20180328
  Transmission Date: 20180509
  Serious: No
  Sender: FDA-Public Use
  Company Number: US-TARO-2017TAR01053

PATIENT
  Sex: Male
  Weight: 98.87 kg

DRUGS (2)
  1. FLUOROURACIL TOPICAL CREAM USP 5% [Suspect]
     Active Substance: FLUOROURACIL
     Dosage: ^A LIGHT FILM,^ 1-2X/DAY
     Route: 061
     Dates: start: 201707, end: 20171204
  2. FLUOROURACIL TOPICAL CREAM USP 5% [Suspect]
     Active Substance: FLUOROURACIL
     Dosage: UNK

REACTIONS (4)
  - Application site exfoliation [Not Recovered/Not Resolved]
  - Therapeutic response unexpected [Recovered/Resolved]
  - Wrong drug administered [Recovered/Resolved]
  - Application site pain [Not Recovered/Not Resolved]

NARRATIVE: CASE EVENT DATE: 2017
